FAERS Safety Report 23394756 (Version 1)
Quarter: 2024Q1

REPORT INFORMATION
  Report Type: Spontaneous
  Country: AT (occurrence: AT)
  Receive Date: 20240112
  Receipt Date: 20240112
  Transmission Date: 20240409
  Serious: Yes (Other)
  Sender: FDA-Public Use
  Company Number: AT-CELLTRION INC.-2024AT000429

PATIENT

DRUGS (4)
  1. ADALIMUMAB [Suspect]
     Active Substance: ADALIMUMAB\ISOPROPYL ALCOHOL
     Indication: Psoriasis
  2. RINVOQ [Suspect]
     Active Substance: UPADACITINIB
     Indication: Product used for unknown indication
     Route: 048
  3. SKYRIZI [Suspect]
     Active Substance: RISANKIZUMAB-RZAA
     Indication: Psoriasis
     Dosage: ACC. TO SMPC
     Route: 058
  4. SKYRIZI [Suspect]
     Active Substance: RISANKIZUMAB-RZAA
     Dosage: UNK, EVERY 1 MONTH
     Route: 058

REACTIONS (7)
  - Polyarthritis [Unknown]
  - Spondylitis [Unknown]
  - Tendonitis [Unknown]
  - Claustrophobia [Unknown]
  - Spinal pain [Unknown]
  - Gastrointestinal disorder [Unknown]
  - Off label use [Unknown]
